FAERS Safety Report 5062764-6 (Version None)
Quarter: 2006Q3

REPORT INFORMATION
  Report Type: 
  Country: None (occurrence: None)
  Receive Date: 20060726
  Receipt Date: 20060717
  Transmission Date: 20061208
  Serious: Yes (Hospitalization)
  Sender: FDA-Public Use
  Company Number: CH-ABBOTT-06P-151-0338436-00

PATIENT
  Age: 44 Year
  Sex: Male

DRUGS (2)
  1. DEPAKENE [Suspect]
     Indication: GRAND MAL CONVULSION
     Route: 048
     Dates: end: 20060426
  2. VALCYTE [Suspect]
     Indication: CYTOMEGALOVIRUS INFECTION
     Route: 048
     Dates: start: 20060413, end: 20060422

REACTIONS (3)
  - GINGIVAL INFECTION [None]
  - PANCYTOPENIA [None]
  - PYREXIA [None]
